FAERS Safety Report 12910520 (Version 1)
Quarter: 2016Q4

REPORT INFORMATION
  Report Type: Spontaneous
  Country: US (occurrence: US)
  Receive Date: 20161104
  Receipt Date: 20161104
  Transmission Date: 20170207
  Serious: Yes (Hospitalization)
  Sender: FDA-Public Use
  Company Number: US-JNJFOC-20160705447

PATIENT
  Age: 55 Year
  Sex: Male

DRUGS (1)
  1. XARELTO [Suspect]
     Active Substance: RIVAROXABAN
     Indication: PULMONARY EMBOLISM
     Dosage: 20 MG, INITIALLY ADVISED TO TAKE HALF TABLET FOR FOUR DAYS LATER FOLLOWED BY 1 TABLET DAILY
     Route: 048
     Dates: start: 20130607, end: 20130611

REACTIONS (3)
  - Haematuria [Recovering/Resolving]
  - Drug prescribing error [Unknown]
  - Off label use [Unknown]

NARRATIVE: CASE EVENT DATE: 20130607
